FAERS Safety Report 10090419 (Version 3)
Quarter: 2014Q2

REPORT INFORMATION
  Report Type: Spontaneous
  Country: US (occurrence: US)
  Receive Date: 20140421
  Receipt Date: 20140507
  Transmission Date: 20141212
  Serious: Yes (Hospitalization)
  Sender: FDA-Public Use
  Company Number: US-SA-CART-1000090

PATIENT
  Age: 27 Year
  Sex: Male

DRUGS (1)
  1. CARTICEL [Suspect]
     Indication: CHONDROPATHY
     Dosage: UNK (IN RIGHT KNEE)
     Route: 014
     Dates: start: 20121112, end: 20121112

REACTIONS (1)
  - Arthritis bacterial [Unknown]
